FAERS Safety Report 13409571 (Version 2)
Quarter: 2017Q4

REPORT INFORMATION
  Report Type: Spontaneous
  Country: US (occurrence: US)
  Receive Date: 20170406
  Receipt Date: 20171108
  Transmission Date: 20180320
  Serious: Yes (Other)
  Sender: FDA-Public Use
  Company Number: US-JNJFOC-20170127315

PATIENT
  Age: 6 Year
  Sex: Male

DRUGS (7)
  1. RISPERDAL [Suspect]
     Active Substance: RISPERIDONE
     Indication: ATTENTION DEFICIT/HYPERACTIVITY DISORDER
     Dosage: VARYING DOSES OF 1 MG AND 1.5 MG
     Route: 048
     Dates: start: 20030703, end: 20130904
  2. RISPERDAL [Suspect]
     Active Substance: RISPERIDONE
     Indication: ANGER
     Dosage: VARYING DOSES OF 1 MG AND 1.5 MG
     Route: 048
     Dates: start: 20150515, end: 20150522
  3. RISPERIDONE. [Suspect]
     Active Substance: RISPERIDONE
     Indication: ATTENTION DEFICIT/HYPERACTIVITY DISORDER
     Route: 048
     Dates: start: 20081007, end: 20130222
  4. RISPERDAL [Suspect]
     Active Substance: RISPERIDONE
     Indication: SLEEP DISORDER
     Dosage: VARYING DOSES OF 1 MG AND 1.5 MG
     Route: 048
     Dates: start: 20030703, end: 20130904
  5. RISPERDAL [Suspect]
     Active Substance: RISPERIDONE
     Indication: ANGER
     Dosage: VARYING DOSES OF 1 MG AND 1.5 MG
     Route: 048
     Dates: start: 20030703, end: 20130904
  6. RISPERDAL [Suspect]
     Active Substance: RISPERIDONE
     Indication: ATTENTION DEFICIT/HYPERACTIVITY DISORDER
     Dosage: VARYING DOSES OF 1 MG AND 1.5 MG
     Route: 048
     Dates: start: 20150515, end: 20150522
  7. RISPERDAL [Suspect]
     Active Substance: RISPERIDONE
     Indication: SLEEP DISORDER
     Dosage: VARYING DOSES OF 1 MG AND 1.5 MG
     Route: 048
     Dates: start: 20150515, end: 20150522

REACTIONS (5)
  - Off label use [Unknown]
  - Gynaecomastia [Unknown]
  - Product use in unapproved indication [Unknown]
  - Obesity [Unknown]
  - Emotional disorder [Unknown]

NARRATIVE: CASE EVENT DATE: 20030703
